FAERS Safety Report 18504529 (Version 3)
Quarter: 2021Q3

REPORT INFORMATION
  Report Type: Spontaneous
  Country: AT (occurrence: AT)
  Receive Date: 20201114
  Receipt Date: 20210817
  Transmission Date: 20211014
  Serious: Yes (Other)
  Sender: FDA-Public Use
  Company Number: NVSC2020AT299112

PATIENT
  Age: 75 Year
  Sex: Male
  Weight: 66 kg

DRUGS (12)
  1. OXALIPLATIN. [Suspect]
     Active Substance: OXALIPLATIN
     Dosage: 149 MG
     Route: 065
     Dates: start: 20200909
  2. FLUOROURACIL. [Suspect]
     Active Substance: FLUOROURACIL
     Indication: COLORECTAL CANCER METASTATIC
     Dosage: 2818 MG
     Route: 042
     Dates: start: 20200826
  3. VECTIBIX [Suspect]
     Active Substance: PANITUMUMAB
     Dosage: 398 MG
     Route: 042
     Dates: start: 20201112
  4. VECTIBIX [Suspect]
     Active Substance: PANITUMUMAB
     Dosage: 396 MG
     Route: 042
     Dates: start: 20201007
  5. FOLINIC ACID [Suspect]
     Active Substance: LEUCOVORIN
     Indication: COLORECTAL CANCER METASTATIC
     Dosage: 700 MG
     Route: 065
     Dates: start: 20200826
  6. FLUOROURACIL. [Suspect]
     Active Substance: FLUOROURACIL
     Dosage: 700 MG
     Route: 042
     Dates: start: 20200826
  7. FLUOROURACIL. [Suspect]
     Active Substance: FLUOROURACIL
     Dosage: 2800 MG
     Route: 042
     Dates: start: 20200923
  8. OXALIPLATIN. [Suspect]
     Active Substance: OXALIPLATIN
     Indication: COLORECTAL CANCER METASTATIC
     Dosage: 150 MG
     Route: 065
     Dates: start: 20200826
  9. OXALIPLATIN. [Suspect]
     Active Substance: OXALIPLATIN
     Dosage: 148 MG
     Route: 065
     Dates: start: 20200923
  10. VECTIBIX [Suspect]
     Active Substance: PANITUMUMAB
     Indication: COLORECTAL CANCER METASTATIC
     Dosage: 398 MG
     Route: 042
     Dates: start: 20200909
  11. VECTIBIX [Suspect]
     Active Substance: PANITUMUMAB
     Dosage: 394 MG
     Route: 042
     Dates: start: 20200923
  12. FLUOROURACIL. [Suspect]
     Active Substance: FLUOROURACIL
     Dosage: 2807 MG
     Route: 042
     Dates: start: 20200909

REACTIONS (2)
  - Skin reaction [Recovered/Resolved]
  - Erythema multiforme [Not Recovered/Not Resolved]

NARRATIVE: CASE EVENT DATE: 20201020
